FAERS Safety Report 8169441-3 (Version None)
Quarter: 2012Q1

REPORT INFORMATION
  Report Type: 
  Country: None (occurrence: None)
  Receive Date: 20120222
  Receipt Date: 20120208
  Transmission Date: 20120608
  Serious: Yes (Death, Other)
  Sender: FDA-Public Use
  Company Number: MC201200080

PATIENT
  Sex: Female

DRUGS (1)
  1. ANGIOMAX [Suspect]
     Indication: PERCUTANEOUS CORONARY INTERVENTION

REACTIONS (2)
  - CORONARY ARTERY THROMBOSIS [None]
  - COAGULATION TIME ABNORMAL [None]
